FAERS Safety Report 8795881 (Version 6)
Quarter: 2013Q1

REPORT INFORMATION
  Report Type: Spontaneous
  Country: US (occurrence: US)
  Receive Date: 20120920
  Receipt Date: 20130301
  Transmission Date: 20140127
  Serious: No
  Sender: FDA-Public Use
  Company Number: US-009507513-1209USA004501

PATIENT
  Sex: Female

DRUGS (3)
  1. PEG-INTRON [Suspect]
     Indication: CHRONIC HEPATITIS C
     Dosage: UNK
     Dates: start: 20120904
  2. RIBAVIRIN [Suspect]
     Indication: CHRONIC HEPATITIS C
     Dosage: UNK
     Route: 048
     Dates: start: 20120904
  3. METHOTREXATE [Concomitant]
     Indication: RHEUMATOID ARTHRITIS

REACTIONS (19)
  - Diarrhoea [Unknown]
  - Oral herpes [Unknown]
  - Nausea [Unknown]
  - Drug ineffective [Unknown]
  - Therapeutic response decreased [Unknown]
  - Sinusitis [Unknown]
  - Myalgia [Not Recovered/Not Resolved]
  - Cholelithiasis [Unknown]
  - Nausea [Unknown]
  - Decreased appetite [Unknown]
  - Vomiting [Unknown]
  - Injection site erythema [Unknown]
  - Injection site erythema [Unknown]
  - Eating disorder [Unknown]
  - Poor quality sleep [Unknown]
  - Stomatitis [Unknown]
  - Decreased appetite [Unknown]
  - Epistaxis [Unknown]
  - Nasal discomfort [Unknown]
